FAERS Safety Report 17209609 (Version 1)
Quarter: 2019Q4

REPORT INFORMATION
  Report Type: Spontaneous
  Country: US (occurrence: US)
  Receive Date: 20191227
  Receipt Date: 20191227
  Transmission Date: 20200122
  Serious: Yes (Other)
  Sender: FDA-Public Use
  Company Number: US-SA-2019SA355927

PATIENT
  Age: 58 Year
  Sex: Male

DRUGS (1)
  1. AUBAGIO [Suspect]
     Active Substance: TERIFLUNOMIDE
     Dosage: 14 MG

REACTIONS (4)
  - Gait disturbance [Unknown]
  - Staphylococcal infection [Unknown]
  - Groin infection [Unknown]
  - Back pain [Unknown]

NARRATIVE: CASE EVENT DATE: 201909
